FAERS Safety Report 8465368-8 (Version None)
Quarter: 2012Q2

REPORT INFORMATION
  Report Type: 
  Country: None (occurrence: None)
  Receive Date: 20120626
  Receipt Date: 20120423
  Transmission Date: 20120825
  Serious: No
  Sender: FDA-Public Use
  Company Number: US-TEVA-333870USA

PATIENT
  Sex: Male
  Weight: 82.628 kg

DRUGS (2)
  1. OXYCODONE HCL [Concomitant]
     Indication: BRAIN NEOPLASM
     Dosage: 90 - 120 MG DAILY
     Route: 048
  2. FENTORA [Suspect]
     Indication: PAIN
     Route: 002
     Dates: start: 20060101, end: 20120411

REACTIONS (2)
  - HEADACHE [None]
  - INSOMNIA [None]
